FAERS Safety Report 12734536 (Version 2)
Quarter: 2016Q4

REPORT INFORMATION
  Report Type: Report from Study
  Country: KR (occurrence: KR)
  Receive Date: 20160912
  Receipt Date: 20161019
  Transmission Date: 20170207
  Serious: Yes (Death, Other)
  Sender: FDA-Public Use
  Company Number: KR-BRISTOL-MYERS SQUIBB COMPANY-BMS-2016-023465

PATIENT
  Age: 86 Year
  Sex: Male
  Weight: 62.3 kg

DRUGS (1)
  1. APIXABAN [Suspect]
     Active Substance: APIXABAN
     Indication: CEREBROVASCULAR ACCIDENT PROPHYLAXIS
     Dosage: 2.5 MG, BID
     Route: 048
     Dates: start: 20150110, end: 20160116

REACTIONS (2)
  - Hypercapnia [Fatal]
  - Cardiac failure [Fatal]

NARRATIVE: CASE EVENT DATE: 201601
